FAERS Safety Report 6812305-5 (Version None)
Quarter: 2010Q3

REPORT INFORMATION
  Report Type: 
  Country: None (occurrence: None)
  Receive Date: 20100701
  Receipt Date: 20100628
  Transmission Date: 20110219
  Serious: Yes (Other)
  Sender: FDA-Public Use
  Company Number: US-ROXANE LABORATORIES, INC.-2010-RO-00771RO

PATIENT
  Age: 32 Year
  Sex: Female

DRUGS (6)
  1. SUMATRIPTAN SUCCINATE [Suspect]
     Indication: MIGRAINE
  2. LAMOTRIGINE [Suspect]
     Indication: MIGRAINE
  3. LAMOTRIGINE [Suspect]
     Indication: MIGRAINE PROPHYLAXIS
  4. ADRIAMYCIN PFS [Suspect]
     Indication: BREAST CANCER
  5. CYTOXAN [Suspect]
     Indication: BREAST CANCER
  6. TAXOL [Suspect]
     Indication: BREAST CANCER
     Dates: start: 20080512, end: 20080822

REACTIONS (4)
  - AMENORRHOEA [None]
  - BREAST CANCER [None]
  - DRUG INEFFECTIVE [None]
  - MIGRAINE [None]
